FAERS Safety Report 13615800 (Version 1)
Quarter: 2017Q2

REPORT INFORMATION
  Report Type: Spontaneous
  Country: MX (occurrence: MX)
  Receive Date: 20170606
  Receipt Date: 20170606
  Transmission Date: 20170830
  Serious: Yes (Other)
  Sender: FDA-Public Use
  Company Number: MX-PFIZER INC-2017243470

PATIENT
  Age: 86 Year
  Sex: Female

DRUGS (3)
  1. NORVASC [Suspect]
     Active Substance: AMLODIPINE BESYLATE
     Dosage: 5 MG, UNK
  2. SERMION [Suspect]
     Active Substance: NICERGOLINE
     Indication: BRAIN HYPOXIA
     Dosage: 30 MG, 2X/DAY
  3. ALDACTONE A [Suspect]
     Active Substance: SPIRONOLACTONE
     Dosage: 25 MG, UNK

REACTIONS (3)
  - Dysarthria [Not Recovered/Not Resolved]
  - Intestinal obstruction [Not Recovered/Not Resolved]
  - Thrombosis [Not Recovered/Not Resolved]

NARRATIVE: CASE EVENT DATE: 201702
